FAERS Safety Report 9522874 (Version 3)
Quarter: 2014Q1

REPORT INFORMATION
  Report Type: Report from Study
  Country: JP (occurrence: JP)
  Receive Date: 20130913
  Receipt Date: 20140206
  Transmission Date: 20141002
  Serious: Yes (Hospitalization)
  Sender: FDA-Public Use
  Company Number: JP-AMGEN-JPNCT2013064574

PATIENT
  Age: 75 Year
  Sex: Female
  Weight: 40 kg

DRUGS (6)
  1. DENOSUMAB [Suspect]
     Indication: METASTASES TO BONE
     Dosage: 120 MG, UNK
     Route: 058
     Dates: start: 20130213, end: 20130213
  2. ZOMETA [Concomitant]
     Indication: METASTASES TO BONE
     Dosage: 4 MG, QD
     Route: 042
     Dates: start: 20110420, end: 20130116
  3. FEMARA [Concomitant]
     Dosage: UNK
     Route: 065
     Dates: start: 20100828, end: 20130326
  4. FASLODEX [Concomitant]
     Dosage: UNK
     Route: 065
     Dates: start: 20130327
  5. ISODINE GARGLE [Concomitant]
     Dosage: UNKNOWN AS-NEEDED
     Route: 050
     Dates: start: 20130227
  6. CODEINE PHOSPHATE [Concomitant]
     Dosage: UNK
     Route: 048
     Dates: start: 20130327, end: 20130410

REACTIONS (1)
  - Osteonecrosis of jaw [Recovering/Resolving]
